FAERS Safety Report 17525946 (Version 1)
Quarter: 2020Q1

REPORT INFORMATION
  Report Type: Spontaneous
  Country: GB (occurrence: GB)
  Receive Date: 20200310
  Receipt Date: 20200310
  Transmission Date: 20200409
  Serious: Yes (Life-Threatening, Hospitalization, Other)
  Sender: FDA-Public Use
  Company Number: GB-ELI_LILLY_AND_COMPANY-GB202003003120

PATIENT
  Age: 78 Year
  Sex: Female
  Weight: 64.41 kg

DRUGS (2)
  1. TRULICITY [Suspect]
     Active Substance: DULAGLUTIDE
     Indication: DIABETES MELLITUS
     Dosage: 1.5 MG, WEEKLY (1/W)
     Route: 058
     Dates: start: 20191115, end: 20200127
  2. DAPAGLIFLOZIN PROPANEDIOL MONOHYDRATE [Suspect]
     Active Substance: DAPAGLIFLOZIN PROPANEDIOL
     Indication: DIABETES MELLITUS
     Dosage: 10 MG, DAILY
     Route: 048
     Dates: start: 201505, end: 20200127

REACTIONS (1)
  - Diabetic ketoacidosis [Recovering/Resolving]

NARRATIVE: CASE EVENT DATE: 20200124
